FAERS Safety Report 12215075 (Version 3)
Quarter: 2016Q2

REPORT INFORMATION
  Report Type: Spontaneous
  Country: US (occurrence: US)
  Receive Date: 20160328
  Receipt Date: 20160513
  Transmission Date: 20160815
  Serious: Yes (Other)
  Sender: FDA-Public Use
  Company Number: US-JNJFOC-20160321294

PATIENT
  Sex: Female
  Weight: 67.59 kg

DRUGS (8)
  1. NEO-SYNALAR [Concomitant]
     Active Substance: FLUOCINOLONE ACETONIDE\NEOMYCIN SULFATE
     Dosage: 0.5-0.025
     Route: 061
     Dates: start: 20151214
  2. DIOVAN [Concomitant]
     Active Substance: VALSARTAN
     Route: 065
  3. FERROUS SULFATE. [Concomitant]
     Active Substance: FERROUS SULFATE
     Route: 048
     Dates: start: 20150414, end: 20150514
  4. STELARA [Suspect]
     Active Substance: USTEKINUMAB
     Indication: PSORIASIS
     Dosage: RECEIVED APPROXIMATELY TOTAL 11 INJECTIONS.
     Route: 058
     Dates: start: 20130923, end: 20151214
  5. TACLONEX [Concomitant]
     Active Substance: BETAMETHASONE DIPROPIONATE\CALCIPOTRIENE\CALCIPOTRIENE HYDRATE
     Route: 061
     Dates: start: 20160120, end: 20160222
  6. VITAMIN D [Concomitant]
     Active Substance: CHOLECALCIFEROL
     Route: 048
     Dates: start: 20150414, end: 20151014
  7. TACLONEX [Concomitant]
     Active Substance: BETAMETHASONE DIPROPIONATE\CALCIPOTRIENE\CALCIPOTRIENE HYDRATE
     Route: 061
     Dates: start: 20131029, end: 20131129
  8. NEOSALUS [Concomitant]
     Route: 061
     Dates: start: 20131029, end: 20131229

REACTIONS (1)
  - Breast cancer [Unknown]
